FAERS Safety Report 13068045 (Version 1)
Quarter: 2016Q4

REPORT INFORMATION
  Report Type: Spontaneous
  Country: CA (occurrence: CA)
  Receive Date: 20161228
  Receipt Date: 20161228
  Transmission Date: 20170207
  Serious: Yes (Other)
  Sender: FDA-Public Use
  Company Number: CA-ROCHE-1871987

PATIENT
  Age: 67 Year
  Sex: Male

DRUGS (3)
  1. METHOTREXATE. [Suspect]
     Active Substance: METHOTREXATE
     Indication: RHEUMATOID ARTHRITIS
     Route: 065
  2. ENBREL [Suspect]
     Active Substance: ETANERCEPT
     Indication: RHEUMATOID ARTHRITIS
     Route: 065
  3. ACTEMRA [Suspect]
     Active Substance: TOCILIZUMAB
     Indication: RHEUMATOID ARTHRITIS
     Route: 065

REACTIONS (8)
  - Hip fracture [Unknown]
  - Oedema peripheral [Recovering/Resolving]
  - Cataract [Unknown]
  - Rheumatoid arthritis [Unknown]
  - Hypothyroidism [Unknown]
  - Joint injury [Unknown]
  - Hypertension [Unknown]
  - Post procedural infection [Unknown]

NARRATIVE: CASE EVENT DATE: 2014
